FAERS Safety Report 25994900 (Version 1)
Quarter: 2025Q4

REPORT INFORMATION
  Report Type: Report from Study
  Country: US (occurrence: US)
  Receive Date: 20251104
  Receipt Date: 20251104
  Transmission Date: 20260118
  Serious: Yes (Other)
  Sender: ALEXION PHARMACEUTICALS
  Company Number: US-AstraZeneca-CH-00982996A

PATIENT
  Sex: Female

DRUGS (2)
  1. STRENSIQ [Suspect]
     Active Substance: ASFOTASE ALFA
     Indication: Hypophosphatasia
     Dosage: UNK
     Route: 065
  2. ZOLEDRONIC [Concomitant]
     Active Substance: ZOLEDRONIC ACID
     Dosage: UNK
     Route: 065

REACTIONS (8)
  - Femur fracture [Unknown]
  - Bone cancer [Unknown]
  - Osteoporosis [Unknown]
  - Bone pain [Unknown]
  - Hypokinesia [Unknown]
  - Vomiting [Unknown]
  - Nausea [Unknown]
  - Therapeutic response unexpected [Unknown]
